FAERS Safety Report 6703834-3 (Version None)
Quarter: 2010Q2

REPORT INFORMATION
  Report Type: 
  Country: None (occurrence: None)
  Receive Date: 20100430
  Receipt Date: 20100420
  Transmission Date: 20101027
  Serious: Yes (Hospitalization)
  Sender: FDA-Public Use
  Company Number: CH-PFIZER INC-2010050098

PATIENT
  Age: 60 Year
  Sex: Female

DRUGS (15)
  1. NEURONTIN [Suspect]
     Indication: TRIGEMINAL NEURALGIA
     Dosage: 500MG DAILY
     Route: 048
     Dates: start: 20100129, end: 20100215
  2. TEGRETOL [Suspect]
     Indication: TRIGEMINAL NEURALGIA
     Dosage: 600MG DAILY
     Route: 048
     Dates: start: 20100204, end: 20100223
  3. TEGRETOL [Suspect]
     Dosage: 200 MG, 2X/DAY
     Route: 048
     Dates: start: 20100224
  4. TRYPTIZOL [Suspect]
     Indication: TRIGEMINAL NEURALGIA
     Dosage: 50 MG, 1X/DAY
     Route: 048
     Dates: start: 20100209
  5. RIVOTRIL [Suspect]
     Dosage: 2 MG, 1X/DAY
     Route: 048
  6. DAFALGAN [Suspect]
     Dosage: UNK
     Route: 048
     Dates: end: 20100224
  7. VITARUBIN [Concomitant]
     Dosage: 1000 UG, WEEKLY
     Route: 048
  8. FOLIC ACID [Concomitant]
     Dosage: 5 MG, 1X/DAY
     Route: 048
  9. DIAMICRON [Concomitant]
     Dosage: 30 MG, 2X/DAY
     Route: 048
  10. NOVORAPID [Concomitant]
  11. INSULATARD [Concomitant]
     Dosage: 32 LU
  12. CLEXANE [Concomitant]
     Dosage: 50 MG, 2X/DAY
     Route: 048
  13. SINTROM [Concomitant]
  14. MOVICOL [Concomitant]
     Dosage: 1 DF
     Route: 048
  15. LIDOCAINE [Concomitant]
     Dosage: 700 MG, 1X/DAY
     Route: 003

REACTIONS (1)
  - HEPATOCELLULAR INJURY [None]
